FAERS Safety Report 17771818 (Version 1)
Quarter: 2020Q2

REPORT INFORMATION
  Report Type: Spontaneous
  Country: US (occurrence: US)
  Receive Date: 20200512
  Receipt Date: 20200512
  Transmission Date: 20200714
  Serious: Yes (Disabling, Other)
  Sender: FDA-Public Use
  Company Number: US-ELI_LILLY_AND_COMPANY-US202005001059

PATIENT

DRUGS (1)
  1. HUMALOG [Suspect]
     Active Substance: INSULIN LISPRO
     Indication: DIABETES MELLITUS
     Dosage: UNK UNK, PRN (25 UNITS MORNING AND 1 UNITS AT NIGHT NOT MORE THAN THAT)
     Route: 065

REACTIONS (4)
  - Blood glucose increased [Recovered/Resolved]
  - Weight increased [Recovering/Resolving]
  - Back disorder [Unknown]
  - Pancreatitis [Unknown]
